FAERS Safety Report 9219896 (Version 1)
Quarter: 2013Q1

REPORT INFORMATION
  Report Type: Spontaneous
  Country: US (occurrence: None)
  Receive Date: 20120829
  Receipt Date: 20120829
  Transmission Date: 20140127
  Serious: Yes (Other)
  Sender: FDA-Public Use
  Company Number: WAES 1110USA02803

PATIENT
  Age: 24 Year
  Sex: Male

DRUGS (2)
  1. ODT MAXALT-MLT UNK [Suspect]
     Indication: HEADACHE
     Route: 048
     Dates: start: 20111013
  2. ODT MAXALT-MLT UNK [Suspect]
     Indication: PHOTOPHOBIA
     Route: 048
     Dates: start: 20111013

REACTIONS (4)
  - Cerebrovascular accident [None]
  - Disorientation [None]
  - Euphoric mood [None]
  - Dysarthria [None]
